FAERS Safety Report 4926503-9 (Version None)
Quarter: 2006Q1

REPORT INFORMATION
  Report Type: 
  Country: None (occurrence: None)
  Receive Date: 20060228
  Receipt Date: 20050421
  Transmission Date: 20060701
  Serious: No
  Sender: FDA-Public Use
  Company Number: US-GLAXOSMITHKLINE-A0555228A

PATIENT
  Age: 15 Year
  Sex: Female

DRUGS (7)
  1. LAMICTAL [Suspect]
     Indication: BIPOLAR DISORDER
     Dosage: 25MG PER DAY
     Route: 048
  2. GEODON [Concomitant]
  3. EFFEXOR [Concomitant]
  4. TRAZODONE [Concomitant]
  5. STRATTERA [Concomitant]
  6. UNKNOWN MEDICATION [Concomitant]
     Route: 065
  7. GLUCOPHAGE [Concomitant]

REACTIONS (1)
  - NAUSEA [None]
